FAERS Safety Report 9562181 (Version 1)
Quarter: 2013Q3

REPORT INFORMATION
  Report Type: Spontaneous
  Country: US (occurrence: US)
  Receive Date: 20130927
  Receipt Date: 20130927
  Transmission Date: 20140515
  Serious: No
  Sender: FDA-Public Use
  Company Number: US-BAYER-2013-116886

PATIENT
  Age: 66 Year
  Sex: Female
  Weight: 62.59 kg

DRUGS (3)
  1. ALEVE TABLET [Suspect]
     Indication: ARTHRITIS
     Dosage: 2 DF, QD
     Route: 048
     Dates: start: 2009
  2. ESTRADIOL [ESTRADIOL] [Concomitant]
  3. VITAMIN D3 [Concomitant]

REACTIONS (2)
  - Therapeutic response unexpected [None]
  - Incorrect drug administration duration [None]
